FAERS Safety Report 6787493-X (Version None)
Quarter: 2010Q2

REPORT INFORMATION
  Report Type: 
  Country: None (occurrence: None)
  Receive Date: 20100623
  Receipt Date: 20080922
  Transmission Date: 20101027
  Serious: No
  Sender: FDA-Public Use
  Company Number: US-PFIZER INC-2006114499

PATIENT
  Sex: Female
  Weight: 81.65 kg

DRUGS (7)
  1. PROCARDIA XL [Suspect]
     Indication: HYPERTENSION
     Dates: start: 19940101, end: 20060920
  2. ATIVAN [Suspect]
  3. MINIPRESS [Suspect]
  4. IBUPROFEN [Concomitant]
  5. PERCOCET [Concomitant]
  6. ZANTAC [Concomitant]
  7. MAGNESIUM OXIDE [Concomitant]

REACTIONS (7)
  - BONE PAIN [None]
  - FATIGUE [None]
  - INAPPROPRIATE ANTIDIURETIC HORMONE SECRETION [None]
  - MUSCLE SPASMS [None]
  - OEDEMA PERIPHERAL [None]
  - PAIN IN EXTREMITY [None]
  - SOMNOLENCE [None]
